FAERS Safety Report 9178212 (Version 1)
Quarter: 2013Q1

REPORT INFORMATION
  Report Type: Report from Study
  Country: US (occurrence: US)
  Receive Date: 20130321
  Receipt Date: 20130321
  Transmission Date: 20140127
  Serious: Yes (Hospitalization)
  Sender: FDA-Public Use
  Company Number: US-009507513-1303USA008587

PATIENT
  Age: 53 None
  Sex: Female

DRUGS (3)
  1. RIBAVIRIN [Suspect]
     Indication: CHRONIC HEPATITIS C
     Dosage: 1200MG DAILY
     Route: 048
     Dates: start: 20111129, end: 20121023
  2. VICTRELIS [Suspect]
     Indication: CHRONIC HEPATITIS C
     Dosage: UNK, TID
     Route: 048
     Dates: start: 20111227, end: 20120806
  3. PEGASYS [Suspect]
     Indication: CHRONIC HEPATITIS C
     Dosage: 180 MICROGRAM, QW
     Route: 058
     Dates: start: 20111129, end: 20121023

REACTIONS (19)
  - Burning sensation [Unknown]
  - Kidney infection [Unknown]
  - Bronchitis [Unknown]
  - Insomnia [Recovering/Resolving]
  - Dry skin [Unknown]
  - Hair texture abnormal [Unknown]
  - Fatigue [Not Recovered/Not Resolved]
  - Headache [Unknown]
  - Myalgia [Unknown]
  - White blood cell count decreased [Unknown]
  - Red blood cell count decreased [Unknown]
  - Hypoaesthesia [Unknown]
  - Alopecia [Unknown]
  - Irritability [Unknown]
  - Anxiety [Unknown]
  - Oropharyngeal pain [Unknown]
  - Chest pain [Unknown]
  - Fatigue [Unknown]
  - Ear infection [Unknown]
